FAERS Safety Report 10051065 (Version 1)
Quarter: 2014Q2

REPORT INFORMATION
  Report Type: Spontaneous
  Country: US (occurrence: US)
  Receive Date: 20140401
  Receipt Date: 20140401
  Transmission Date: 20141212
  Serious: No
  Sender: FDA-Public Use
  Company Number: US-ASTRAZENECA-2013SE47785

PATIENT
  Age: 50 Year
  Sex: Female
  Weight: 75.8 kg

DRUGS (2)
  1. NEXIUM [Suspect]
     Indication: BARRETT^S OESOPHAGUS
     Route: 048
  2. SYNTHROID [Concomitant]

REACTIONS (4)
  - Oropharyngeal pain [Unknown]
  - Oral pain [Unknown]
  - Glossodynia [Unknown]
  - Barrett^s oesophagus [Unknown]
